FAERS Safety Report 7793818-9 (Version None)
Quarter: 2011Q4

REPORT INFORMATION
  Report Type: 
  Country: None (occurrence: None)
  Receive Date: 20111003
  Receipt Date: 20110927
  Transmission Date: 20120403
  Serious: Yes (Hospitalization)
  Sender: FDA-Public Use
  Company Number: PHHY2011US65533

PATIENT
  Sex: Female

DRUGS (2)
  1. EXJADE [Suspect]
     Indication: SICKLE CELL ANAEMIA
     Dosage: 1000 MG, DAILY
  2. EXJADE [Suspect]
     Indication: IRON OVERLOAD
     Dosage: 875 MG, DAILY
     Route: 048
     Dates: start: 20110731, end: 20110805

REACTIONS (2)
  - SICKLE CELL ANAEMIA WITH CRISIS [None]
  - ANAEMIA HAEMOLYTIC AUTOIMMUNE [None]
